FAERS Safety Report 24636263 (Version 1)
Quarter: 2024Q4

REPORT INFORMATION
  Report Type: Spontaneous
  Country: GB (occurrence: GB)
  Receive Date: 20241119
  Receipt Date: 20241119
  Transmission Date: 20250114
  Serious: Yes (Other)
  Sender: AUROBINDO
  Company Number: GB-MHRA-MED-202411061559231680-RVMCS

PATIENT
  Age: 45 Year
  Sex: Female
  Weight: 59 kg

DRUGS (1)
  1. METRONIDAZOLE [Suspect]
     Active Substance: METRONIDAZOLE
     Indication: Pericoronitis
     Dosage: 500 MILLIGRAM, 3 TIMES A DAY (500 MG EVERY 8 HOURS)
     Route: 065
     Dates: start: 20241105, end: 20241106

REACTIONS (12)
  - Chromaturia [Not Recovered/Not Resolved]
  - Renal pain [Recovering/Resolving]
  - Constipation [Not Recovered/Not Resolved]
  - Abdominal distension [Not Recovered/Not Resolved]
  - Heart rate increased [Not Recovered/Not Resolved]
  - Dizziness [Not Recovered/Not Resolved]
  - Anxiety [Not Recovered/Not Resolved]
  - Vulvovaginal candidiasis [Not Recovered/Not Resolved]
  - Dry mouth [Recovering/Resolving]
  - Thirst [Recovering/Resolving]
  - Paraesthesia [Recovering/Resolving]
  - Ear pain [Recovering/Resolving]
